FAERS Safety Report 4375476-9 (Version None)
Quarter: 2004Q2

REPORT INFORMATION
  Report Type: 
  Country: None (occurrence: None)
  Receive Date: 20040608
  Receipt Date: 20040524
  Transmission Date: 20050107
  Serious: No
  Sender: FDA-Public Use
  Company Number: 2004SE02513

PATIENT
  Age: 38 Year
  Sex: Female
  Weight: 62 kg

DRUGS (4)
  1. CRESTOR [Suspect]
     Indication: TYPE IIA HYPERLIPIDAEMIA
     Dates: start: 20031203, end: 20031231
  2. BETOLVEX [Concomitant]
  3. TRINOVUM [Concomitant]
  4. ORUDIS [Concomitant]

REACTIONS (2)
  - HOT FLUSH [None]
  - HYPERHIDROSIS [None]
